FAERS Safety Report 8986387 (Version 3)
Quarter: 2013Q2

REPORT INFORMATION
  Report Type: Spontaneous
  Country: FR (occurrence: FR)
  Receive Date: 20121227
  Receipt Date: 20130422
  Transmission Date: 20140414
  Serious: Yes (Other)
  Sender: FDA-Public Use
  Company Number: FR-BAYER-2012-133359

PATIENT
  Sex: Male

DRUGS (1)
  1. NEXAVAR [Suspect]
     Indication: HEPATOCELLULAR CARCINOMA

REACTIONS (4)
  - Hepatic necrosis [None]
  - Aortic arteriosclerosis [None]
  - Mesenteric arteriosclerosis [None]
  - Rash pustular [None]
